FAERS Safety Report 7449764-3 (Version None)
Quarter: 2011Q2

REPORT INFORMATION
  Report Type: 
  Country: None (occurrence: None)
  Receive Date: 20110421
  Receipt Date: 20110406
  Transmission Date: 20111010
  Serious: Yes (Congenital Anomaly)
  Sender: FDA-Public Use
  Company Number: 029771

PATIENT
  Sex: Female
  Weight: 3 kg

DRUGS (9)
  1. THYROID TAB [Concomitant]
  2. FOLIC ACID [Concomitant]
  3. CALCIUM CITRATE [Concomitant]
  4. KEPPRA [Suspect]
     Indication: EPILEPSY
     Dosage: SEE IMAGE INTRAVENOUS
     Route: 042
     Dates: start: 20100718, end: 20100803
  5. KEPPRA [Suspect]
     Indication: EPILEPSY
     Dosage: SEE IMAGE INTRAVENOUS
     Route: 042
     Dates: start: 20100624, end: 20100717
  6. KEPPRA [Suspect]
     Indication: EPILEPSY
     Dosage: SEE IMAGE INTRAVENOUS
     Route: 042
     Dates: start: 20100804, end: 20100817
  7. KEPPRA [Suspect]
     Indication: EPILEPSY
     Dosage: SEE IMAGE INTRAVENOUS
     Route: 042
     Dates: end: 20100623
  8. MULTI-VITAMINS [Concomitant]
  9. VITAMIN D [Concomitant]

REACTIONS (3)
  - DACRYOSTENOSIS CONGENITAL [None]
  - MATERNAL DRUGS AFFECTING FOETUS [None]
  - ANKYLOGLOSSIA CONGENITAL [None]
